FAERS Safety Report 25185281 (Version 1)
Quarter: 2025Q2

REPORT INFORMATION
  Report Type: Spontaneous
  Country: US (occurrence: None)
  Receive Date: 20250410
  Receipt Date: 20250410
  Transmission Date: 20250716
  Serious: No
  Sender: FDA-CTU
  Company Number: None

PATIENT
  Age: 40 Year
  Sex: Female

DRUGS (3)
  1. SYSTANE (HYPROMELLOSE 2910 (4000 MPA.S)) [Suspect]
     Active Substance: HYPROMELLOSE 2910 (4000 MPA.S)
     Indication: Dry eye
     Dates: start: 20241225, end: 20250110
  2. SYSTANE (HYPROMELLOSE 2910 (4000 MPA.S)) [Suspect]
     Active Substance: HYPROMELLOSE 2910 (4000 MPA.S)
     Indication: Visual impairment
  3. SYSTANE (HYPROMELLOSE 2910 (4000 MPA.S)) [Suspect]
     Active Substance: HYPROMELLOSE 2910 (4000 MPA.S)
     Indication: Hypersensitivity

REACTIONS (3)
  - Eye irritation [None]
  - Inflammation [None]
  - Recalled product administered [None]

NARRATIVE: CASE EVENT DATE: 20241225
